FAERS Safety Report 8430349-7 (Version None)
Quarter: 2012Q2

REPORT INFORMATION
  Report Type: 
  Country: None (occurrence: None)
  Receive Date: 20120323
  Receipt Date: 20110802
  Transmission Date: 20120825
  Serious: Yes (Hospitalization)
  Sender: FDA-Public Use
  Company Number: 163-21880-11070469

PATIENT
  Age: 59 Year
  Sex: Female

DRUGS (17)
  1. ASPIRIN [Concomitant]
  2. FLUTICASONE PROPIONATE [Concomitant]
  3. DEXAMETHASONE [Concomitant]
  4. SINGULAIR [Concomitant]
  5. OXYCODONE-ACETAMINOPHEN (OXYCOCET) [Concomitant]
  6. WOMEN'S VITA PAK (VITAMINS) [Concomitant]
  7. ATENOLOL [Concomitant]
  8. EPIPEN [Concomitant]
  9. FUROSEMIDE [Concomitant]
  10. PROMETHAZINE HCL [Concomitant]
  11. SYMBICORT (SYMBICORT TURBUHALER) [Concomitant]
  12. CALCIUM CARBONATE [Concomitant]
  13. LORAZEPAM [Concomitant]
  14. NEXIUM [Concomitant]
  15. PROVENTIL HFA (SALBUTAMOL) [Concomitant]
  16. REVLIMID [Suspect]
     Indication: MULTIPLE MYELOMA
     Dosage: 25 MG, DAILY ON DAYS 1-14 OF 21 DAY CYCLE, PO
     Route: 048
     Dates: start: 20110425, end: 20110508
  17. FEXOFENADINE HCL (FEXOFENADINE HYDROCHLORIDE) [Concomitant]

REACTIONS (2)
  - FEMUR FRACTURE [None]
  - PATHOLOGICAL FRACTURE [None]
